FAERS Safety Report 7558785-1 (Version None)
Quarter: 2011Q2

REPORT INFORMATION
  Report Type: 
  Country: None (occurrence: None)
  Receive Date: 20110621
  Receipt Date: 20110608
  Transmission Date: 20111010
  Serious: No
  Sender: FDA-Public Use
  Company Number: US-BIOGENIDEC-2011BI022294

PATIENT
  Sex: Female

DRUGS (8)
  1. AVONEX [Concomitant]
     Indication: MULTIPLE SCLEROSIS
     Route: 030
     Dates: start: 20090101
  2. RELPAX [Concomitant]
     Indication: MULTIPLE SCLEROSIS
  3. LORAZEPAM [Concomitant]
     Indication: MULTIPLE SCLEROSIS
  4. BACLOFEN [Concomitant]
     Indication: MULTIPLE SCLEROSIS
  5. OXYCODEINE [Concomitant]
     Indication: MULTIPLE SCLEROSIS
  6. TRAZEDONE [Concomitant]
     Indication: MULTIPLE SCLEROSIS
  7. TYSABRI [Suspect]
     Indication: MULTIPLE SCLEROSIS
     Route: 042
     Dates: start: 20090129
  8. OXYCONTIN [Concomitant]
     Indication: MULTIPLE SCLEROSIS

REACTIONS (6)
  - MEMORY IMPAIRMENT [None]
  - EAR INFECTION [None]
  - FATIGUE [None]
  - HERPES VIRUS INFECTION [None]
  - PAIN [None]
  - MIGRAINE [None]
